FAERS Safety Report 15308280 (Version 1)
Quarter: 2018Q4

REPORT INFORMATION
  Report Type: Spontaneous
  Country: NL (occurrence: NL)
  Receive Date: 20180822
  Receipt Date: 20180822
  Transmission Date: 20190204
  Serious: Yes (Other)
  Sender: FDA-Public Use
  Company Number: NL-TEVA-2018-NL-946392

PATIENT
  Age: 55 Year
  Sex: Male
  Weight: 95 kg

DRUGS (6)
  1. LOSARTAN/HYDROCHLOORTHIAZIDE OMHULDE TABLET, 100/25 MG (MILLIGRAM) [Suspect]
     Active Substance: HYDROCHLOROTHIAZIDE\LOSARTAN POTASSIUM
     Indication: HYPERTENSION
     Route: 065
  2. ALPRAZOLAM TABLET, 0,5 MG (MILLIGRAM) [Concomitant]
     Dosage: 6 MAAL DAAGS
  3. VENTOLIN (SALBUTAMOL) INHALATIEPOEDER, 200 ?G/DOSIS (MICROGRAM PER DOS [Concomitant]
     Dosage: NAAR BEHOEFTE; SOMS 1 TOT 3 MAAL PER DAG.
  4. ATORVASTATINE TEVA TABLET FILMOMHULD 40 MG 2 MAAL 40 MG. PER DAG IN EE [Suspect]
     Active Substance: ATORVASTATIN
     Indication: PROPHYLAXIS
     Dosage: 2 MAAL 40 MG. PER DAG IN EEN GIFT
     Route: 065
  5. CARBASALAATCALCIUM ZAKJE (POEDER), 100 MG (MILLIGRAM) [Suspect]
     Active Substance: CARBASPIRIN CALCIUM
     Indication: PROPHYLAXIS
     Dosage: 1 MAAL DAAGS 100 MG.
     Route: 065
  6. GAVISCON (ALGINEZUUR/NATRIUMWATERSTOFCARBONAAT) DRANK 50/26,7 MG/ML [Concomitant]
     Dosage: 2 MAAL DAAGS

REACTIONS (16)
  - Neck pain [Not Recovered/Not Resolved]
  - Listless [Not Recovered/Not Resolved]
  - Pain [Not Recovered/Not Resolved]
  - Loss of libido [Not Recovered/Not Resolved]
  - Suicidal ideation [Not Recovered/Not Resolved]
  - Anxiety disorder [Not Recovered/Not Resolved]
  - Abdominal pain [Not Recovered/Not Resolved]
  - Depressed mood [Not Recovered/Not Resolved]
  - Fatigue [Not Recovered/Not Resolved]
  - Dyspnoea [Not Recovered/Not Resolved]
  - Nervousness [Not Recovered/Not Resolved]
  - Pain in extremity [Not Recovered/Not Resolved]
  - Gastrooesophageal reflux disease [Not Recovered/Not Resolved]
  - Agitation [Not Recovered/Not Resolved]
  - Constipation [Not Recovered/Not Resolved]
  - Musculoskeletal pain [Not Recovered/Not Resolved]
